FAERS Safety Report 6303567-1 (Version None)
Quarter: 2009Q3

REPORT INFORMATION
  Report Type: 
  Country: None (occurrence: None)
  Receive Date: 20090807
  Receipt Date: 20090807
  Transmission Date: 20100115
  Serious: Yes (Other)
  Sender: FDA-Public Use
  Company Number: None

PATIENT
  Age: 23 Year
  Sex: Female
  Weight: 52.7 kg

DRUGS (3)
  1. VIVITROL [Suspect]
     Indication: ALCOHOLISM
     Dosage: IM
     Route: 030
     Dates: start: 20090716
  2. CAMPRAL [Concomitant]
  3. ZOLOFT [Concomitant]

REACTIONS (1)
  - SUBCUTANEOUS HAEMATOMA [None]
